FAERS Safety Report 7033389-8 (Version None)
Quarter: 2010Q4

REPORT INFORMATION
  Report Type: 
  Country: None (occurrence: None)
  Receive Date: 20101005
  Receipt Date: 20100920
  Transmission Date: 20110411
  Serious: Yes (Hospitalization)
  Sender: FDA-Public Use
  Company Number: 2010-3201

PATIENT
  Sex: Male

DRUGS (1)
  1. DYSPORT [Suspect]
     Indication: HEMIPARESIS
     Dosage: 1800 UNITS (1800 UNITS, SINGLE CYCLE), PARENTERAL
     Route: 051

REACTIONS (5)
  - ASTHENIA [None]
  - DYSARTHRIA [None]
  - DYSPHAGIA [None]
  - OVERDOSE [None]
  - RESPIRATORY DISORDER [None]
